FAERS Safety Report 16663879 (Version 1)
Quarter: 2019Q3

REPORT INFORMATION
  Report Type: Spontaneous
  Country: SE (occurrence: SE)
  Receive Date: 20190802
  Receipt Date: 20190802
  Transmission Date: 20191004
  Serious: Yes (Other)
  Sender: FDA-Public Use
  Company Number: SE-TEVA-2019-SE-1087865

PATIENT
  Age: 80 Year
  Sex: Male

DRUGS (1)
  1. LOSARTAN ACTAVIS 50 MG FILMDRAGERAD TABLETT [Suspect]
     Active Substance: LOSARTAN POTASSIUM
     Indication: HYPERTENSION
     Dosage: 50MG
     Route: 048
     Dates: start: 20180927, end: 20190529

REACTIONS (1)
  - Haemoglobin decreased [Recovering/Resolving]

NARRATIVE: CASE EVENT DATE: 20181009
